FAERS Safety Report 10187942 (Version 1)
Quarter: 2014Q2

REPORT INFORMATION
  Report Type: Spontaneous
  Country: US (occurrence: US)
  Receive Date: 20140522
  Receipt Date: 20140522
  Transmission Date: 20141212
  Serious: No
  Sender: FDA-Public Use
  Company Number: US-SA-2013SA095703

PATIENT
  Age: 60 Year
  Sex: Male

DRUGS (3)
  1. LANTUS SOLOSTAR [Suspect]
     Indication: TYPE 1 DIABETES MELLITUS
     Dosage: 13 TO 16 UNITS DAILY
     Route: 051
  2. SOLOSTAR [Concomitant]
  3. LEVEMIR [Suspect]

REACTIONS (1)
  - Deafness [Unknown]
